FAERS Safety Report 11555320 (Version 1)
Quarter: 2015Q3

REPORT INFORMATION
  Report Type: Spontaneous
  Country: SK (occurrence: SK)
  Receive Date: 20150925
  Receipt Date: 20150925
  Transmission Date: 20151125
  Serious: Yes (Other)
  Sender: FDA-Public Use
  Company Number: SK-TEVA-595717ISR

PATIENT
  Age: 36 Year
  Sex: Female

DRUGS (9)
  1. EFFENTORA [Suspect]
     Active Substance: FENTANYL CITRATE
     Dosage: MAXIMUM 3 TIMES A DAY
     Dates: start: 201505
  2. EFFENTORA [Suspect]
     Active Substance: FENTANYL CITRATE
     Indication: BREAKTHROUGH PAIN
     Dates: start: 2015, end: 201503
  3. TRANSTEC [Concomitant]
     Active Substance: BUPRENORPHINE
     Dosage: 52.5 MCG/HOUR
     Dates: start: 201503, end: 201505
  4. LYRICA [Concomitant]
     Active Substance: PREGABALIN
     Route: 048
     Dates: start: 2015
  5. TRANSTEC [Concomitant]
     Active Substance: BUPRENORPHINE
     Dosage: 35 MCG/HOUR
     Dates: start: 2015, end: 201503
  6. TRANSTEC [Concomitant]
     Active Substance: BUPRENORPHINE
     Dosage: 140 MCG/HOUR
     Dates: start: 201508
  7. EFFENTORA [Suspect]
     Active Substance: FENTANYL CITRATE
     Dosage: 3 TO 4 TIMES A DAY
     Dates: start: 201503, end: 201505
  8. TRANSTEC [Concomitant]
     Active Substance: BUPRENORPHINE
     Dosage: 70 MCG/HOUR
     Dates: start: 201505, end: 201508
  9. LAEVOLAC [Concomitant]
     Active Substance: LACTULOSE
     Dates: start: 2015

REACTIONS (7)
  - Skin discolouration [Unknown]
  - Pain [Unknown]
  - Phlebitis [Unknown]
  - Muscle rigidity [Unknown]
  - Pallor [Unknown]
  - Excoriation [Unknown]
  - Oedema [Unknown]

NARRATIVE: CASE EVENT DATE: 201507
